FAERS Safety Report 5032586-0 (Version None)
Quarter: 2006Q2

REPORT INFORMATION
  Report Type: 
  Country: None (occurrence: None)
  Receive Date: 20060620
  Receipt Date: 20060620
  Transmission Date: 20061013
  Serious: Yes (Hospitalization)
  Sender: FDA-Public Use
  Company Number: None

PATIENT
  Age: 75 Year
  Sex: Male
  Weight: 64.4108 kg

DRUGS (2)
  1. TARGRETIN [Suspect]
     Indication: MESOTHELIOMA
     Dosage: 675 MG DAILY
     Dates: start: 20060608, end: 20060617
  2. DOCETAXEL 35MG/M2 IV WKLY 3 OF 4 [Suspect]
     Indication: MESOTHELIOMA
     Dosage: 62 MG IV
     Route: 042
     Dates: start: 20060608, end: 20060615

REACTIONS (4)
  - DYSPNOEA [None]
  - PLEURAL EFFUSION [None]
  - PNEUMONIA [None]
  - THROMBOSIS [None]
